FAERS Safety Report 8316552-5 (Version None)
Quarter: 2012Q2

REPORT INFORMATION
  Report Type: 
  Country: None (occurrence: None)
  Receive Date: 20120425
  Receipt Date: 20120425
  Transmission Date: 20120825
  Serious: No
  Sender: FDA-Public Use
  Company Number: None

PATIENT
  Sex: Female

DRUGS (1)
  1. PILOCARPINE HYDROCHLORIDE [Suspect]
     Indication: DRY MOUTH
     Dosage: TWO QAM, ONE NOON ONE DINNER QHS
     Dates: start: 20080101

REACTIONS (1)
  - DRUG INEFFECTIVE [None]
